FAERS Safety Report 16432771 (Version 1)
Quarter: 2019Q2

REPORT INFORMATION
  Report Type: Spontaneous
  Country: CZ (occurrence: CZ)
  Receive Date: 20190614
  Receipt Date: 20190614
  Transmission Date: 20190711
  Serious: Yes (Hospitalization)
  Sender: FDA-Public Use
  Company Number: CZ-TEVA-2019-CZ-1062414

PATIENT
  Sex: Male

DRUGS (4)
  1. FURON [Suspect]
     Active Substance: FUROSEMIDE
     Indication: CONGENITAL HEART VALVE INCOMPETENCE
     Dosage: 1/4 OF TABLET
     Route: 065
     Dates: start: 20190403, end: 20190430
  2. TENAXUM 1 MG [Concomitant]
     Indication: CONGENITAL HEART VALVE INCOMPETENCE
     Dosage: 0-0-1
     Dates: start: 20130530
  3. COSYREL [Suspect]
     Active Substance: BISOPROLOL FUMARATE\PERINDOPRIL ARGININE
     Indication: CONGENITAL HEART VALVE INCOMPETENCE
     Dosage: 1/2 OF TABLET
     Route: 065
     Dates: start: 20190403, end: 20190430
  4. EUTHYROX 50 MG [Concomitant]
     Dosage: 1-0-0
     Dates: start: 20190417

REACTIONS (6)
  - Arthralgia [Recovering/Resolving]
  - Abdominal pain [Unknown]
  - Chest pain [Recovered/Resolved]
  - Diarrhoea [Recovered/Resolved]
  - Dyspnoea [Recovered/Resolved]
  - Malaise [Unknown]

NARRATIVE: CASE EVENT DATE: 201904
